FAERS Safety Report 14700062 (Version 1)
Quarter: 2018Q1

REPORT INFORMATION
  Report Type: Spontaneous
  Country: US (occurrence: US)
  Receive Date: 20180330
  Receipt Date: 20180330
  Transmission Date: 20180509
  Serious: No
  Sender: FDA-Public Use
  Company Number: US-009507513-1803USA013076

PATIENT
  Age: 81 Year
  Sex: Male

DRUGS (2)
  1. INTRON A [Suspect]
     Active Substance: INTERFERON ALFA-2B
     Indication: OCULAR NEOPLASM
  2. INTRON A [Suspect]
     Active Substance: INTERFERON ALFA-2B
     Indication: SQUAMOUS CELL CARCINOMA
     Dosage: 1 MILLION IU/ML 4 TIMES A DAY
     Route: 061

REACTIONS (4)
  - Conjunctival hyperaemia [Recovered/Resolved]
  - Off label use [Unknown]
  - Conjunctival irritation [Recovered/Resolved]
  - Conjunctival oedema [Recovered/Resolved]
